FAERS Safety Report 6208988-3 (Version None)
Quarter: 2009Q2

REPORT INFORMATION
  Report Type: 
  Country: None (occurrence: None)
  Receive Date: 20090529
  Receipt Date: 20090520
  Transmission Date: 20091009
  Serious: Yes (Hospitalization)
  Sender: FDA-Public Use
  Company Number: PHEH2009US04408

PATIENT
  Age: 65 Year
  Sex: Male

DRUGS (3)
  1. EXJADE [Suspect]
     Indication: HAEMOCHROMATOSIS
     Dosage: 20 MG/KG/DAY
     Route: 048
     Dates: start: 20090218, end: 20090413
  2. EXJADE [Suspect]
     Indication: IRON OVERLOAD
  3. DRUG THERAPY NOS [Concomitant]
     Indication: CARDIAC DISORDER

REACTIONS (11)
  - ANAEMIA [None]
  - BLOOD CREATININE INCREASED [None]
  - BLOOD UREA INCREASED [None]
  - CHEST PAIN [None]
  - DYSPNOEA [None]
  - INFECTION [None]
  - MALAISE [None]
  - MYOCARDIAL INFARCTION [None]
  - OEDEMA [None]
  - PANCYTOPENIA [None]
  - RENAL FAILURE [None]
